FAERS Safety Report 11094009 (Version 1)
Quarter: 2015Q2

REPORT INFORMATION
  Report Type: Report from Study
  Country: US (occurrence: US)
  Receive Date: 20150506
  Receipt Date: 20150506
  Transmission Date: 20150821
  Serious: Yes (Disabling, Other)
  Sender: FDA-Public Use
  Company Number: US-SANOFI-AVENTIS-2013SA032711

PATIENT
  Age: 48 Year
  Sex: Female

DRUGS (3)
  1. AUBAGIO [Suspect]
     Active Substance: TERIFLUNOMIDE
     Indication: RELAPSING-REMITTING MULTIPLE SCLEROSIS
     Route: 048
     Dates: start: 20130219, end: 20140129
  2. AUBAGIO [Suspect]
     Active Substance: TERIFLUNOMIDE
     Indication: RELAPSING-REMITTING MULTIPLE SCLEROSIS
     Route: 048
  3. PAXIL [Concomitant]
     Active Substance: PAROXETINE HYDROCHLORIDE
     Indication: DEPRESSION

REACTIONS (24)
  - Condition aggravated [Not Recovered/Not Resolved]
  - Coordination abnormal [Not Recovered/Not Resolved]
  - Pain [Unknown]
  - Disorientation [Not Recovered/Not Resolved]
  - Hand-eye coordination impaired [Unknown]
  - Asthma [Unknown]
  - Asthenia [Not Recovered/Not Resolved]
  - Cystitis [Unknown]
  - Gastrointestinal pain [Not Recovered/Not Resolved]
  - Alopecia [Unknown]
  - Muscular weakness [Unknown]
  - Balance disorder [Unknown]
  - Dysgraphia [Unknown]
  - Dyspnoea [Unknown]
  - Muscular weakness [Not Recovered/Not Resolved]
  - Hypersensitivity [Unknown]
  - Paraesthesia [Unknown]
  - Drug dose omission [Unknown]
  - Gait disturbance [Unknown]
  - Burning sensation [Unknown]
  - Urinary incontinence [Unknown]
  - Immobile [Not Recovered/Not Resolved]
  - Wheezing [Unknown]
  - Diarrhoea [Not Recovered/Not Resolved]

NARRATIVE: CASE EVENT DATE: 2013
